FAERS Safety Report 18882587 (Version 2)
Quarter: 2021Q2

REPORT INFORMATION
  Report Type: Report from Study
  Country: CR (occurrence: CR)
  Receive Date: 20210211
  Receipt Date: 20210504
  Transmission Date: 20210717
  Serious: Yes (Other)
  Sender: FDA-Public Use
  Company Number: NVSC2021CR028652

PATIENT
  Age: 68 Year
  Sex: Female

DRUGS (3)
  1. DIOVAN [Suspect]
     Active Substance: VALSARTAN
     Indication: HYPERTENSION
     Dosage: 320 MG (STARTED SINCE YESTERDAY), QD
     Route: 065
  2. GALVUS [Suspect]
     Active Substance: VILDAGLIPTIN
     Dosage: UNK, QD
     Route: 065
  3. GALVUS [Suspect]
     Active Substance: VILDAGLIPTIN
     Indication: DIABETES MELLITUS
     Dosage: 50 MG, UNK
     Route: 065

REACTIONS (4)
  - Thyroid disorder [Unknown]
  - Cardiac failure [Unknown]
  - Fluid retention [Unknown]
  - Bradycardia [Recovered/Resolved]

NARRATIVE: CASE EVENT DATE: 201704
